FAERS Safety Report 8607184 (Version 4)
Quarter: 2012Q4

REPORT INFORMATION
  Report Type: 
  Country: US (occurrence: US)
  Receive Date: 20120611
  Receipt Date: 20121109
  Transmission Date: 20130627
  Serious: Yes (Hospitalization, Disabling, Other)
  Sender: FDA-Public Use
  Company Number: US-BAYER-2012-054923

PATIENT
  Age: 43 Year
  Sex: Female
  Weight: 130 kg

DRUGS (33)
  1. YASMIN [Suspect]
     Indication: CONTRACEPTION
     Dosage: UNK
     Dates: start: 20020930, end: 200503
  2. YASMIN [Suspect]
     Indication: HEAVY PERIODS
  3. NPH INSULIN [Concomitant]
     Dosage: 35 units at night
  4. INSULIN [Concomitant]
     Dosage: 20 Units in the morning, 22 Units in the evening
  5. ACTOS [Concomitant]
     Indication: DIABETES
     Dosage: 30 mg daily
     Route: 048
     Dates: start: 2011
  6. LEVOXYL [Concomitant]
     Dosage: 200 ?g, daily
     Route: 048
  7. SPIRONOLACTONE [Concomitant]
     Indication: PUFFINESS FACE
     Dosage: 50 mg, daily
     Route: 048
     Dates: start: 2005
  8. ASPIRIN [Concomitant]
     Dosage: UNK
     Route: 048
  9. MULTIVITAMIN [Concomitant]
     Dosage: UNK
     Route: 048
     Dates: start: 20050221
  10. CALCIUM [Concomitant]
     Dosage: UNK
     Route: 048
  11. SUDAFED [Concomitant]
     Dosage: UNK
     Route: 048
  12. LEVOTHYROXINE [Concomitant]
     Indication: THYROID DISORDER
     Dosage: UNK
     Dates: start: 1987
  13. INSULIN [Concomitant]
  14. ACTACE [Concomitant]
  15. LOVOXIL [Concomitant]
  16. ALEVE [Concomitant]
  17. FLONASE [Concomitant]
  18. LANTUS [Concomitant]
     Indication: DIABETES
     Dosage: UNK
     Dates: start: 1994
  19. NOVOLOG [Concomitant]
     Indication: DIABETES
     Dosage: UNK
     Dates: start: 1994
  20. VANCOMYCIN [Concomitant]
  21. ZOSYN [Concomitant]
  22. CEFTRIAXONE [Concomitant]
  23. HYDROCHLOROTHIAZIDE [Concomitant]
  24. LISINOPRIL [Concomitant]
     Indication: DIABETES
     Dosage: UNK
     Dates: start: 2011
  25. METOPROLOL RETARD [Concomitant]
  26. BACTRIM [Concomitant]
  27. PROVERA [Concomitant]
     Dosage: UNK
     Dates: start: 20040105, end: 20040310
  28. CEPHALEXIN [Concomitant]
     Dosage: 500 mg, one QID
  29. OXYCODONE/APAP [Concomitant]
     Dosage: 5mg-325mg, 1-2 tablets [every] 4 hours prn (as needed)
  30. CIPROFLOXACIN [Concomitant]
     Dosage: UNK UNK,one tablet BID
  31. LOTEMAX [Concomitant]
     Dosage: 0.5 %, UNK
  32. POTASSIUM-SPARING AGENTS [Concomitant]
     Dosage: UNK
     Dates: start: 2003
  33. THYROID PREPARATIONS [Concomitant]
     Dosage: UNK
     Dates: start: 1989

REACTIONS (11)
  - Deep vein thrombosis [None]
  - Cholelithiasis [None]
  - Pulmonary embolism [None]
  - Deep vein thrombosis [None]
  - Pain [None]
  - Injury [None]
  - Anxiety [None]
  - General physical health deterioration [None]
  - Emotional distress [None]
  - Anhedonia [None]
  - Pain [None]
